FAERS Safety Report 9387541 (Version 1)
Quarter: 2013Q3

REPORT INFORMATION
  Report Type: Spontaneous
  Country: IN (occurrence: IN)
  Receive Date: 20130708
  Receipt Date: 20130708
  Transmission Date: 20140515
  Serious: Yes (Other)
  Sender: FDA-Public Use
  Company Number: IN-PFIZER INC-2013198887

PATIENT
  Age: 35 Year
  Sex: Male
  Weight: 50 kg

DRUGS (2)
  1. PIROXICAM [Suspect]
     Indication: BACK PAIN
     Dosage: 2 ML, UNK
     Route: 030
  2. PIROXICAM [Suspect]
     Indication: ARTHRALGIA

REACTIONS (3)
  - Urinary retention [Recovered/Resolved]
  - Face oedema [Recovered/Resolved]
  - Oedema peripheral [Recovered/Resolved]
